FAERS Safety Report 10096579 (Version 1)
Quarter: 2014Q2

REPORT INFORMATION
  Report Type: Spontaneous
  Country: CA (occurrence: CA)
  Receive Date: 20140422
  Receipt Date: 20140422
  Transmission Date: 20141212
  Serious: Yes (Life-Threatening, Hospitalization, Other)
  Sender: FDA-Public Use
  Company Number: CA-ACTAVIS-2014-07687

PATIENT
  Age: 20 Year
  Sex: Female
  Weight: 50 kg

DRUGS (5)
  1. ACETAMINOPHEN (UNKNOWN) [Suspect]
     Indication: PRODUCT USED FOR UNKNOWN INDICATION
     Dosage: 60 G, TOTAL
     Route: 048
  2. IBUPROFEN (UNKNOWN) [Suspect]
     Indication: PRODUCT USED FOR UNKNOWN INDICATION
     Dosage: 32 G, TOTAL
     Route: 048
  3. PSEUDOEPHEDRINE (UNKNOWN) [Suspect]
     Indication: PRODUCT USED FOR UNKNOWN INDICATION
     Dosage: 2.2 G, TOTAL
     Route: 048
  4. CHLORPHENIRAMINE MALEATE (WATSON LABORATORIES) [Suspect]
     Indication: PRODUCT USED FOR UNKNOWN INDICATION
     Dosage: 144 MG, TOTAL
     Route: 048
  5. CITALOPRAM [Concomitant]
     Indication: PRODUCT USED FOR UNKNOWN INDICATION
     Dosage: 20 MG, BID
     Route: 065

REACTIONS (6)
  - Coma [Recovered/Resolved]
  - Lactic acidosis [Recovered/Resolved]
  - Vomiting [Unknown]
  - International normalised ratio increased [Recovered/Resolved]
  - Transaminases increased [Recovered/Resolved]
  - Overdose [Recovered/Resolved]
